FAERS Safety Report 5594832-4 (Version None)
Quarter: 2008Q1

REPORT INFORMATION
  Report Type: 
  Country: None (occurrence: None)
  Receive Date: 20080117
  Receipt Date: 20080109
  Transmission Date: 20080703
  Serious: Yes (Hospitalization)
  Sender: FDA-Public Use
  Company Number: US-JNJFOC-20080102754

PATIENT
  Sex: Male
  Weight: 81.65 kg

DRUGS (5)
  1. DURAGESIC-100 [Suspect]
     Indication: BACK PAIN
     Route: 062
  2. DURAGESIC-100 [Suspect]
     Indication: ABDOMINAL PAIN UPPER
     Dosage: 2 X 100MCG
     Route: 062
  3. NEXIUM [Concomitant]
     Indication: GASTRIC DISORDER
     Dosage: 2 CAPSULES EVERY DAY
     Route: 048
  4. FENTORA [Concomitant]
     Indication: BREAKTHROUGH PAIN
     Route: 002
  5. OXYCONTIN [Concomitant]
     Indication: BREAKTHROUGH PAIN
     Route: 048

REACTIONS (20)
  - BLOOD DISORDER [None]
  - CARDIOVASCULAR DISORDER [None]
  - DEPRESSION [None]
  - DRUG ADMINISTERED AT INAPPROPRIATE SITE [None]
  - DRUG INEFFECTIVE [None]
  - EATING DISORDER [None]
  - FEELING ABNORMAL [None]
  - GASTRIC DISORDER [None]
  - INADEQUATE ANALGESIA [None]
  - INCORRECT DRUG ADMINISTRATION DURATION [None]
  - INFECTION [None]
  - MALABSORPTION [None]
  - MALAISE [None]
  - OSTEOMYELITIS [None]
  - PAIN IN EXTREMITY [None]
  - PHARMACEUTICAL PRODUCT COMPLAINT [None]
  - SURGERY [None]
  - THERAPEUTIC AGENT URINE NEGATIVE [None]
  - THROMBOSIS [None]
  - VOMITING [None]
